FAERS Safety Report 6547774-1 (Version None)
Quarter: 2010Q1

REPORT INFORMATION
  Report Type: 
  Country: None (occurrence: None)
  Receive Date: 20100124
  Receipt Date: 20091007
  Transmission Date: 20100710
  Serious: No
  Sender: FDA-Public Use
  Company Number: US-ALEXION-A200900820

PATIENT

DRUGS (15)
  1. SOLIRIS [Suspect]
     Indication: PAROXYSMAL NOCTURNAL HAEMOGLOBINURIA
     Dosage: 600 MG, QW
     Route: 042
     Dates: start: 20071119, end: 20071210
  2. SOLIRIS [Suspect]
     Dosage: 900 MG, Q2W
     Route: 042
     Dates: start: 20071219
  3. SLOW-FE                            /00023503/ [Concomitant]
     Indication: BLOOD IRON DECREASED
     Dosage: 47.5 MG, 2XWK
     Route: 048
  4. VITAMIN A [Concomitant]
     Dosage: UNK
     Route: 048
  5. FOSAMAX [Concomitant]
     Dosage: 70 MG, QWK
     Route: 048
  6. FOLIC ACID [Concomitant]
     Dosage: 1 MG, BID
     Route: 048
  7. LEVOTHYROXINE SODIUM [Concomitant]
     Dosage: 75 MCG, QD
     Route: 048
  8. LISINOPRIL [Concomitant]
     Dosage: 10 MG, QD
     Route: 048
  9. ASPIRIN [Concomitant]
     Dosage: 81 MG, QD
  10. MULTIVITAMIN                       /00831701/ [Concomitant]
     Dosage: UNK
     Route: 048
  11. VITAMIN B12                        /00056201/ [Concomitant]
     Dosage: 2500 MCG, QD
     Route: 048
  12. VITAMIN D3 [Concomitant]
     Dosage: 2000 UT, QD
     Route: 048
  13. CALCIUM [Concomitant]
     Dosage: 600 MG, BID
     Route: 048
  14. GLUCOSAMINE [Concomitant]
     Dosage: 2000 UNK, QD
     Route: 048
  15. FISH OIL [Concomitant]
     Dosage: UNK
     Route: 048

REACTIONS (2)
  - RED BLOOD CELL ABNORMALITY [None]
  - RETICULOCYTE COUNT INCREASED [None]
